FAERS Safety Report 9038914 (Version 1)
Quarter: 2013Q1

REPORT INFORMATION
  Report Type: Spontaneous
  Country: US (occurrence: None)
  Receive Date: 20130123
  Receipt Date: 20130123
  Transmission Date: 20140127
  Serious: Yes (Life-Threatening, Hospitalization, Other)
  Sender: FDA-Public Use
  Company Number: None

PATIENT
  Age: 56 Year
  Sex: Male
  Weight: 99.79 kg

DRUGS (3)
  1. LITHIUM [Suspect]
     Dates: start: 20110929, end: 20130609
  2. BENZTROPINE MESYLATE [Suspect]
     Dates: start: 20120919, end: 20130609
  3. RISPERIDONE [Suspect]
     Dates: start: 20110929, end: 20130609

REACTIONS (3)
  - Sedation [None]
  - Hypersomnia [None]
  - Economic problem [None]
